FAERS Safety Report 6582892-3 (Version None)
Quarter: 2010Q1

REPORT INFORMATION
  Report Type: 
  Country: None (occurrence: None)
  Receive Date: 20100216
  Receipt Date: 20100205
  Transmission Date: 20100710
  Serious: Yes (Other)
  Sender: FDA-Public Use
  Company Number: US-ELI_LILLY_AND_COMPANY-US201002002222

PATIENT
  Sex: Female

DRUGS (5)
  1. HUMULIN R [Suspect]
     Indication: DIABETES MELLITUS
  2. HUMULIN N [Suspect]
     Indication: DIABETES MELLITUS
  3. HUMULIN 70/30 [Suspect]
     Indication: DIABETES MELLITUS
  4. LANTUS [Concomitant]
  5. BYETTA [Concomitant]

REACTIONS (6)
  - ASTHMA [None]
  - BRONCHOSPASM [None]
  - HYPERSENSITIVITY [None]
  - MUSCLE SPASMS [None]
  - PULMONARY CONGESTION [None]
  - WHEEZING [None]
